FAERS Safety Report 6203607-4 (Version None)
Quarter: 2009Q2

REPORT INFORMATION
  Report Type: 
  Country: None (occurrence: None)
  Receive Date: 20090527
  Receipt Date: 20090522
  Transmission Date: 20091009
  Serious: Yes (Death, Other)
  Sender: FDA-Public Use
  Company Number: CY-CELGENEUS-041-21880-09050480

PATIENT
  Sex: Male
  Weight: 90 kg

DRUGS (1)
  1. REVLIMID [Suspect]
     Indication: DRUG USE FOR UNKNOWN INDICATION
     Route: 048

REACTIONS (2)
  - CARDIOPULMONARY FAILURE [None]
  - SEPTIC SHOCK [None]
